FAERS Safety Report 20292317 (Version 1)
Quarter: 2022Q1

REPORT INFORMATION
  Report Type: Spontaneous
  Country: US (occurrence: None)
  Receive Date: 20220104
  Receipt Date: 20220104
  Transmission Date: 20220423
  Serious: Yes (Death, Life-Threatening)
  Sender: FDA-Public Use
  Company Number: None

PATIENT
  Sex: Male
  Weight: 93 kg

DRUGS (1)
  1. BARICITINIB [Suspect]
     Active Substance: BARICITINIB

REACTIONS (3)
  - Herpes simplex hepatitis [None]
  - Hepatic haemorrhage [None]
  - Hepatic necrosis [None]
